FAERS Safety Report 5628258-1 (Version None)
Quarter: 2008Q1

REPORT INFORMATION
  Report Type: 
  Country: None (occurrence: None)
  Receive Date: 20080215
  Receipt Date: 20080206
  Transmission Date: 20080703
  Serious: Yes (Death)
  Sender: FDA-Public Use
  Company Number: AU-SANOFI-SYNTHELABO-A01200801308

PATIENT
  Sex: Female

DRUGS (1)
  1. STILNOX [Suspect]
     Dosage: UNK
     Route: 065

REACTIONS (1)
  - DEATH [None]
